FAERS Safety Report 10180728 (Version 2)
Quarter: 2014Q2

REPORT INFORMATION
  Report Type: Spontaneous
  Country: US (occurrence: US)
  Receive Date: 20140519
  Receipt Date: 20140519
  Transmission Date: 20141212
  Serious: No
  Sender: FDA-Public Use
  Company Number: US-AMGEN INC.-USASP2014002856

PATIENT
  Age: 75 Year
  Sex: Female
  Weight: 56.24 kg

DRUGS (4)
  1. PROLIA [Suspect]
     Indication: OSTEOPOROSIS
     Dosage: 60 MG, ONCE
     Route: 058
     Dates: start: 20140123
  2. PROLIA [Suspect]
     Route: 058
  3. NIACIN [Concomitant]
     Dosage: UNK
     Dates: start: 2013
  4. FISH OIL [Concomitant]
     Dosage: UNK
     Dates: start: 2013

REACTIONS (5)
  - Rotator cuff syndrome [Unknown]
  - Scoliosis [Unknown]
  - Back pain [Not Recovered/Not Resolved]
  - Arthralgia [Not Recovered/Not Resolved]
  - Pain in extremity [Unknown]
